FAERS Safety Report 6178825-4 (Version None)
Quarter: 2009Q2

REPORT INFORMATION
  Report Type: 
  Country: None (occurrence: None)
  Receive Date: 20090504
  Receipt Date: 20090319
  Transmission Date: 20091009
  Serious: No
  Sender: FDA-Public Use
  Company Number: US-ALEXION-A200900227

PATIENT
  Sex: Male

DRUGS (10)
  1. SOLIRIS [Suspect]
     Indication: PAROXYSMAL NOCTURNAL HAEMOGLOBINURIA
     Dosage: 600 MG, QWK X4
     Route: 042
     Dates: start: 20080424, end: 20080514
  2. SOLIRIS [Suspect]
     Dosage: 900 MG, Q2W
     Route: 042
     Dates: start: 20080521
  3. PHENYTOIN [Concomitant]
     Dosage: 100 MG, TID
  4. FOLIC ACID [Concomitant]
  5. CALCIUM [Concomitant]
  6. RANITIDINE [Concomitant]
     Dosage: 2 TABS, QD, HS
  7. BENAZEPRIL W/HYDROCHLOROTHIAZIDE [Concomitant]
     Dosage: UNK
     Dates: end: 20090301
  8. DILTIAZEM [Concomitant]
     Dosage: 120 MG, BID
  9. BENADRYL [Concomitant]
     Indication: PREMEDICATION
     Dosage: 50 MG, UNK
     Route: 048
  10. DARVOCET                           /00220901/ [Concomitant]
     Indication: BACK PAIN

REACTIONS (6)
  - ABDOMINAL PAIN UPPER [None]
  - ASTHENIA [None]
  - BACK PAIN [None]
  - CONDITION AGGRAVATED [None]
  - DYSPHAGIA [None]
  - RASH PRURITIC [None]
